FAERS Safety Report 6303014-X (Version None)
Quarter: 2009Q3

REPORT INFORMATION
  Report Type: 
  Country: None (occurrence: None)
  Receive Date: 20090810
  Receipt Date: 20090731
  Transmission Date: 20100115
  Serious: Yes (Hospitalization)
  Sender: FDA-Public Use
  Company Number: JP-ASTRAZENECA-2009SE05032

PATIENT
  Age: 22900 Day
  Sex: Female
  Weight: 55 kg

DRUGS (11)
  1. CANDESARTAN CILEXETIL [Suspect]
     Indication: HYPERTENSION
     Route: 048
     Dates: start: 20050317, end: 20090709
  2. CANDESARTAN CILEXETIL [Suspect]
     Route: 048
     Dates: start: 20090710, end: 20090710
  3. CANDESARTAN CILEXETIL [Suspect]
     Route: 048
     Dates: start: 20090712
  4. AMARYL [Concomitant]
     Indication: DIABETES MELLITUS
     Route: 048
     Dates: start: 20060713, end: 20090709
  5. AMARYL [Concomitant]
     Route: 048
     Dates: start: 20090710, end: 20090710
  6. AMARYL [Concomitant]
     Route: 048
     Dates: start: 20090701
  7. METFORMIN HCL [Concomitant]
     Indication: DIABETES MELLITUS
     Route: 048
     Dates: start: 19990913, end: 20090709
  8. METFORMIN HCL [Concomitant]
     Route: 048
     Dates: start: 20090710, end: 20090710
  9. METFORMIN HCL [Concomitant]
     Route: 048
     Dates: start: 20090701
  10. YODEL S [Concomitant]
     Indication: CONSTIPATION
     Route: 048
     Dates: start: 20010723, end: 20090710
  11. YODEL S [Concomitant]
     Route: 048
     Dates: start: 20090701

REACTIONS (5)
  - DEPRESSED LEVEL OF CONSCIOUSNESS [None]
  - HYPERURICAEMIA [None]
  - HYPOTENSION [None]
  - INTENTIONAL OVERDOSE [None]
  - RENAL IMPAIRMENT [None]
